FAERS Safety Report 23612015 (Version 5)
Quarter: 2024Q2

REPORT INFORMATION
  Report Type: Spontaneous
  Country: US (occurrence: US)
  Receive Date: 20240308
  Receipt Date: 20240625
  Transmission Date: 20240715
  Serious: No
  Sender: FDA-Public Use
  Company Number: US-002147023-NVSC2024US050380

PATIENT
  Sex: Female

DRUGS (1)
  1. COSENTYX [Suspect]
     Active Substance: SECUKINUMAB
     Indication: Hidradenitis
     Dosage: 300 MG (300 MG/2ML) (Q 28 DAYS)
     Route: 058
     Dates: start: 20240209, end: 20240326

REACTIONS (5)
  - Device malfunction [Unknown]
  - Device breakage [Unknown]
  - Drug dose omission by device [Unknown]
  - Accidental exposure to product [Recovered/Resolved]
  - Product leakage [Unknown]
